FAERS Safety Report 5905850-8 (Version None)
Quarter: 2008Q4

REPORT INFORMATION
  Report Type: 
  Country: None (occurrence: None)
  Receive Date: 20081001
  Receipt Date: 20081001
  Transmission Date: 20090506
  Serious: Yes (Life-Threatening, Hospitalization, Disabling)
  Sender: FDA-Public Use
  Company Number: None

PATIENT
  Age: 48 Year
  Sex: Male

DRUGS (1)
  1. SUMATRIPTAN SUCCINATE [Suspect]
     Indication: HEADACHE
     Dates: start: 20080828

REACTIONS (3)
  - ARTERY DISSECTION [None]
  - OVERDOSE [None]
  - TRANSIENT ISCHAEMIC ATTACK [None]
